FAERS Safety Report 10017816 (Version 1)
Quarter: 2014Q1

REPORT INFORMATION
  Report Type: Spontaneous
  Country: US (occurrence: US)
  Receive Date: 20140318
  Receipt Date: 20140318
  Transmission Date: 20141002
  Serious: No
  Sender: FDA-Public Use
  Company Number: US-TEVA-469060USA

PATIENT
  Age: 21 Year
  Sex: Female
  Weight: 107.6 kg

DRUGS (4)
  1. PARAGARD 380A [Suspect]
     Indication: CONTRACEPTION
     Route: 015
     Dates: start: 20140206, end: 20140313
  2. ALBUTEROL [Concomitant]
     Indication: ASTHMA
  3. CELEXA [Concomitant]
     Indication: DEPRESSION
  4. SINGULAIR [Concomitant]
     Indication: ASTHMA

REACTIONS (2)
  - Pelvic pain [Recovered/Resolved]
  - Device expulsion [Recovered/Resolved]
